FAERS Safety Report 8183464-X (Version None)
Quarter: 2012Q1

REPORT INFORMATION
  Report Type: 
  Country: None (occurrence: None)
  Receive Date: 20120305
  Receipt Date: 20120224
  Transmission Date: 20120608
  Serious: Yes (Other)
  Sender: FDA-Public Use
  Company Number: US-BAYER-2012-018964

PATIENT
  Age: 42 Year
  Sex: Female

DRUGS (1)
  1. YAZ [Suspect]
     Dosage: UNK
     Dates: start: 20080901, end: 20110901

REACTIONS (6)
  - PSYCHOLOGICAL TRAUMA [None]
  - PAIN [None]
  - ANHEDONIA [None]
  - FEAR [None]
  - ANXIETY [None]
  - DEEP VEIN THROMBOSIS [None]
